FAERS Safety Report 8885550 (Version 1)
Quarter: 2012Q4

REPORT INFORMATION
  Report Type: 
  Country: US (occurrence: US)
  Receive Date: 20121101
  Receipt Date: 20121101
  Transmission Date: 20130627
  Serious: No
  Sender: FDA-Public Use
  Company Number: US-PFIZER INC-2012267622

PATIENT
  Age: 46 Year
  Sex: Female
  Weight: 68.03 kg

DRUGS (2)
  1. FLECTOR [Suspect]
     Indication: ACHILLES TENDONITIS
     Dosage: UNK, 2x/day
     Dates: start: 20121003, end: 20121010
  2. MOBIC [Concomitant]
     Indication: ACHILLES TENDONITIS
     Dosage: 15 mg,daily
     Dates: start: 20121011

REACTIONS (3)
  - Erythema [Recovering/Resolving]
  - Blister [Recovering/Resolving]
  - Skin burning sensation [Recovering/Resolving]
